FAERS Safety Report 8495589-X (Version None)
Quarter: 2012Q3

REPORT INFORMATION
  Report Type: 
  Country: None (occurrence: None)
  Receive Date: 20120709
  Receipt Date: 20120704
  Transmission Date: 20120928
  Serious: Yes (Life-Threatening, Hospitalization, Disabling, Other)
  Sender: FDA-Public Use
  Company Number: FR-ASTRAZENECA-2012SE45754

PATIENT
  Sex: Female

DRUGS (2)
  1. LIDOCAINE [Suspect]
  2. LIDOCAINE [Suspect]
     Indication: LOCAL ANAESTHESIA
     Dates: start: 20120529, end: 20120529

REACTIONS (7)
  - COMA [None]
  - CONVULSION [None]
  - WRONG DRUG ADMINISTERED [None]
  - BRADYCARDIA [None]
  - CARDIAC ARREST [None]
  - CEREBRAL INFARCTION [None]
  - MULTI-ORGAN FAILURE [None]
